FAERS Safety Report 15454240 (Version 1)
Quarter: 2018Q4

REPORT INFORMATION
  Report Type: Spontaneous
  Country: GB (occurrence: GB)
  Receive Date: 20181002
  Receipt Date: 20181002
  Transmission Date: 20190204
  Serious: Yes (Hospitalization)
  Sender: FDA-Public Use
  Company Number: GB-RICON PHARMA, LLC-RIC201809-000966

PATIENT
  Age: 56 Year
  Sex: Female

DRUGS (2)
  1. TRIAMCINOLONE ACETONIDE. [Suspect]
     Active Substance: TRIAMCINOLONE ACETONIDE
  2. LEVOBUPIVACAINE [Concomitant]
     Active Substance: LEVOBUPIVACAINE

REACTIONS (1)
  - Abscess limb [Recovering/Resolving]
